FAERS Safety Report 8062554-6 (Version None)
Quarter: 2012Q1

REPORT INFORMATION
  Report Type: 
  Country: None (occurrence: None)
  Receive Date: 20120118
  Receipt Date: 20120104
  Transmission Date: 20120608
  Serious: Yes (Other)
  Sender: FDA-Public Use
  Company Number: 1201-006

PATIENT
  Age: 85 Year
  Sex: Male

DRUGS (2)
  1. EYLEA [Suspect]
     Indication: AGE-RELATED MACULAR DEGENERATION
     Dosage: 2 MG, ONCE, INTRAVITREAL
     Route: 031
     Dates: start: 20101215, end: 20101215
  2. GENTAMICIN [Concomitant]

REACTIONS (1)
  - CORNEAL DECOMPENSATION [None]
